FAERS Safety Report 4839076-6 (Version None)
Quarter: 2005Q4

REPORT INFORMATION
  Report Type: 
  Country: None (occurrence: None)
  Receive Date: 20051129
  Receipt Date: 20010816
  Transmission Date: 20060501
  Serious: Yes (Other)
  Sender: FDA-Public Use
  Company Number: US-GLAXOSMITHKLINE-A0352112A

PATIENT
  Age: 73 Year
  Sex: Male
  Weight: 70.29 kg

DRUGS (16)
  1. AVODART [Suspect]
     Dosage: .5MG PER DAY
     Route: 048
     Dates: start: 20050901, end: 20050901
  2. REQUIP [Suspect]
     Indication: PARKINSON'S DISEASE
     Dosage: .75MG PER DAY
     Route: 048
     Dates: start: 20010701
  3. HYDROCHLOROTHIAZIDE [Suspect]
     Indication: DRUG USE FOR UNKNOWN INDICATION
     Dosage: 12.5MG PER DAY
     Route: 048
     Dates: start: 20050101, end: 20050401
  4. ANTIHYPERTENSIVE [Suspect]
     Indication: HYPERTENSION
     Route: 065
     Dates: end: 20040101
  5. HYDROCHLOROTHIAZIDE [Suspect]
  6. ZETIA [Suspect]
  7. CHOLESTEROL REDUCING AGENT [Suspect]
  8. ALLOPURINOL [Concomitant]
  9. VITAMIN E [Concomitant]
  10. COENZYME Q10 [Concomitant]
  11. ASCORBIC ACID [Concomitant]
  12. SELENIUM SULFIDE [Concomitant]
  13. FELODIPINE [Concomitant]
  14. ZETIA [Concomitant]
  15. SINEMET [Concomitant]
     Indication: PARKINSON'S DISEASE
     Dates: start: 20050101
  16. WATER PILL [Concomitant]

REACTIONS (14)
  - ABDOMINAL PAIN UPPER [None]
  - ARTHRALGIA [None]
  - ASTHENIA [None]
  - CONSTIPATION [None]
  - DRUG INEFFECTIVE [None]
  - HALLUCINATION [None]
  - HYPOAESTHESIA [None]
  - JOINT SWELLING [None]
  - MUSCLE SPASMS [None]
  - MYALGIA [None]
  - OEDEMA PERIPHERAL [None]
  - OVERDOSE [None]
  - PAIN IN EXTREMITY [None]
  - TREMOR [None]
